FAERS Safety Report 16691852 (Version 2)
Quarter: 2019Q3

REPORT INFORMATION
  Report Type: Report from Study
  Country: CL (occurrence: CL)
  Receive Date: 20190812
  Receipt Date: 20190930
  Transmission Date: 20191004
  Serious: Yes (Hospitalization, Other)
  Sender: FDA-Public Use
  Company Number: PHHY2017CL121919

PATIENT
  Age: 28 Year
  Sex: Male

DRUGS (5)
  1. PARACETAMOL [Concomitant]
     Active Substance: ACETAMINOPHEN
     Indication: PAIN
     Dosage: 5 OT, UNK
     Route: 065
     Dates: start: 20140726
  2. GILENYA [Suspect]
     Active Substance: FINGOLIMOD HYDROCHLORIDE
     Indication: MULTIPLE SCLEROSIS
     Dosage: UNK, QD
     Route: 048
  3. OMEPRAZOLE. [Concomitant]
     Active Substance: OMEPRAZOLE
     Indication: PROPHYLAXIS
     Dosage: 20 MG, UNK
     Route: 065
     Dates: start: 20140726
  4. TRAMOL (PARACETAMOL) [Concomitant]
     Indication: PAIN
     Dosage: 4 G, UNK
     Route: 065
     Dates: start: 20140726
  5. ESCITALOPRAM [Concomitant]
     Active Substance: ESCITALOPRAM OXALATE
     Indication: DEPRESSION
     Dosage: UNK
     Route: 065
     Dates: start: 20170711

REACTIONS (9)
  - Fungal infection [Unknown]
  - Deep vein thrombosis [Recovered/Resolved]
  - Affective disorder [Not Recovered/Not Resolved]
  - Herpes zoster oticus [Recovered/Resolved]
  - Nasopharyngitis [Recovered/Resolved]
  - Viral infection [Unknown]
  - Cough [Unknown]
  - Protein deficiency [Not Recovered/Not Resolved]
  - Odynophagia [Unknown]

NARRATIVE: CASE EVENT DATE: 20150402
